FAERS Safety Report 6187006-X (Version None)
Quarter: 2009Q2

REPORT INFORMATION
  Report Type: 
  Country: None (occurrence: None)
  Receive Date: 20090508
  Receipt Date: 20090508
  Transmission Date: 20091009
  Serious: Yes (Other)
  Sender: FDA-Public Use
  Company Number: None

PATIENT
  Age: 78 Year
  Sex: Female
  Weight: 33.1126 kg

DRUGS (2)
  1. LIDOCAINE 2% W/EPINEPHRINE 1:200000 INJ [Suspect]
     Indication: INJECTION
     Dates: start: 20090505, end: 20090505
  2. LIDOCAINE 2% W/EPINEPHRINE 1:200000 INJ [Suspect]
     Indication: NERVE BLOCK
     Dates: start: 20090505, end: 20090505

REACTIONS (1)
  - DRUG INEFFECTIVE [None]
